FAERS Safety Report 7313063-0 (Version None)
Quarter: 2011Q1

REPORT INFORMATION
  Report Type: 
  Country: None (occurrence: None)
  Receive Date: 20110225
  Receipt Date: 20110217
  Transmission Date: 20110831
  Serious: No
  Sender: FDA-Public Use
  Company Number: US-BIOGENIDEC-2010BI035998

PATIENT
  Age: 48 Year
  Sex: Female

DRUGS (1)
  1. TYSABRI [Suspect]
     Indication: MULTIPLE SCLEROSIS
     Route: 042
     Dates: start: 20100519

REACTIONS (4)
  - CARBOHYDRATE ANTIGEN 125 INCREASED [None]
  - THYROID FUNCTION TEST ABNORMAL [None]
  - UTERINE LEIOMYOMA [None]
  - BENIGN UTERINE NEOPLASM [None]
